FAERS Safety Report 7523044-X (Version None)
Quarter: 2011Q2

REPORT INFORMATION
  Report Type: 
  Country: None (occurrence: None)
  Receive Date: 20110603
  Receipt Date: 20110526
  Transmission Date: 20111010
  Serious: Yes (Other)
  Sender: FDA-Public Use
  Company Number: SE-CEPHALON-2011002722

PATIENT
  Sex: Female

DRUGS (1)
  1. MODAFINIL [Suspect]
     Route: 048
     Dates: start: 20110111

REACTIONS (4)
  - MUSCULAR WEAKNESS [None]
  - AMNESIA [None]
  - ALCOHOL INTERACTION [None]
  - CRYING [None]
